FAERS Safety Report 21730284 (Version 3)
Quarter: 2023Q2

REPORT INFORMATION
  Report Type: Spontaneous
  Country: US (occurrence: US)
  Receive Date: 20221214
  Receipt Date: 20230611
  Transmission Date: 20230721
  Serious: Yes (Other)
  Sender: FDA-Public Use
  Company Number: US-JNJFOC-20221226856

PATIENT
  Age: 63 Year
  Sex: Female

DRUGS (47)
  1. ELMIRON [Suspect]
     Active Substance: PENTOSAN POLYSULFATE SODIUM
     Indication: Cystitis interstitial
     Route: 048
     Dates: start: 20050813, end: 20060713
  2. ELMIRON [Suspect]
     Active Substance: PENTOSAN POLYSULFATE SODIUM
     Indication: Micturition urgency
     Route: 048
     Dates: start: 20060812, end: 20060906
  3. ELMIRON [Suspect]
     Active Substance: PENTOSAN POLYSULFATE SODIUM
     Route: 048
     Dates: start: 20060923, end: 20070730
  4. ELMIRON [Suspect]
     Active Substance: PENTOSAN POLYSULFATE SODIUM
     Route: 048
     Dates: start: 20070825, end: 20080224
  5. ELMIRON [Suspect]
     Active Substance: PENTOSAN POLYSULFATE SODIUM
     Route: 048
     Dates: start: 20080507, end: 20080718
  6. ELMIRON [Suspect]
     Active Substance: PENTOSAN POLYSULFATE SODIUM
     Route: 048
     Dates: start: 20090102, end: 20090411
  7. ELMIRON [Suspect]
     Active Substance: PENTOSAN POLYSULFATE SODIUM
     Route: 048
     Dates: start: 20091016, end: 20100702
  8. ELMIRON [Suspect]
     Active Substance: PENTOSAN POLYSULFATE SODIUM
     Route: 048
     Dates: start: 20110104, end: 20110513
  9. ELMIRON [Suspect]
     Active Substance: PENTOSAN POLYSULFATE SODIUM
     Route: 048
     Dates: start: 20110614, end: 20110614
  10. ELMIRON [Suspect]
     Active Substance: PENTOSAN POLYSULFATE SODIUM
     Route: 048
     Dates: start: 20110910, end: 20121203
  11. ELMIRON [Suspect]
     Active Substance: PENTOSAN POLYSULFATE SODIUM
     Route: 048
     Dates: start: 20130104, end: 20161016
  12. ELMIRON [Suspect]
     Active Substance: PENTOSAN POLYSULFATE SODIUM
     Route: 048
     Dates: start: 20161102, end: 20171108
  13. ELMIRON [Suspect]
     Active Substance: PENTOSAN POLYSULFATE SODIUM
     Route: 048
     Dates: start: 20180109, end: 20181003
  14. ELMIRON [Suspect]
     Active Substance: PENTOSAN POLYSULFATE SODIUM
     Route: 048
     Dates: start: 20181229, end: 20200811
  15. LORAZEPAM [Concomitant]
     Active Substance: LORAZEPAM
     Indication: Cystitis interstitial
     Dates: start: 20040821, end: 20040929
  16. LORAZEPAM [Concomitant]
     Active Substance: LORAZEPAM
     Dates: start: 20041031, end: 20050319
  17. LORAZEPAM [Concomitant]
     Active Substance: LORAZEPAM
     Dates: start: 20050428, end: 20050701
  18. LORAZEPAM [Concomitant]
     Active Substance: LORAZEPAM
     Dates: start: 20050815, end: 20080726
  19. LORAZEPAM [Concomitant]
     Active Substance: LORAZEPAM
     Dates: start: 20080912, end: 20081023
  20. DETROL [Concomitant]
     Active Substance: TOLTERODINE TARTRATE
     Indication: Cystitis interstitial
     Dates: start: 1997, end: 20050407
  21. DETROL [Concomitant]
     Active Substance: TOLTERODINE TARTRATE
     Dates: start: 20050512, end: 20060202
  22. DETROL [Concomitant]
     Active Substance: TOLTERODINE TARTRATE
     Dates: start: 20060509, end: 20070328
  23. DETROL [Concomitant]
     Active Substance: TOLTERODINE TARTRATE
     Dates: start: 20070616, end: 20080321
  24. DETROL [Concomitant]
     Active Substance: TOLTERODINE TARTRATE
     Dates: start: 20080501, end: 20080726
  25. DETROL [Concomitant]
     Active Substance: TOLTERODINE TARTRATE
     Dates: start: 20100128, end: 20100623
  26. IMIPRAMINE [Concomitant]
     Active Substance: IMIPRAMINE
     Indication: Cystitis interstitial
     Dates: start: 20040511, end: 20050401
  27. IMIPRAMINE [Concomitant]
     Active Substance: IMIPRAMINE
     Dates: start: 20050428, end: 20050917
  28. IMIPRAMINE [Concomitant]
     Active Substance: IMIPRAMINE
     Dates: start: 20051020, end: 20060715
  29. IMIPRAMINE [Concomitant]
     Active Substance: IMIPRAMINE
     Dates: start: 20100128, end: 20100128
  30. IMIPRAMINE [Concomitant]
     Active Substance: IMIPRAMINE
     Dates: start: 20100519, end: 20121210
  31. IMIPRAMINE [Concomitant]
     Active Substance: IMIPRAMINE
     Dates: start: 20130104, end: 20151106
  32. IMIPRAMINE [Concomitant]
     Active Substance: IMIPRAMINE
     Dates: start: 20151122, end: 20160106
  33. IMIPRAMINE [Concomitant]
     Active Substance: IMIPRAMINE
     Dates: start: 20160325, end: 20170316
  34. IMIPRAMINE [Concomitant]
     Active Substance: IMIPRAMINE
     Dates: start: 20170629, end: 20210702
  35. PRILOSEC [Concomitant]
     Active Substance: OMEPRAZOLE MAGNESIUM
     Indication: Barrett^s oesophagus
     Dates: start: 20040929, end: 20050531
  36. PRILOSEC [Concomitant]
     Active Substance: OMEPRAZOLE MAGNESIUM
     Indication: Gastrooesophageal reflux disease
     Dates: start: 20050626, end: 20060520
  37. ZELNORM [Concomitant]
     Active Substance: TEGASEROD MALEATE
     Indication: Irritable bowel syndrome
     Dates: start: 20051223, end: 20060629
  38. AMITRIPTYLINE [Concomitant]
     Active Substance: AMITRIPTYLINE
     Indication: Cystitis interstitial
     Dates: start: 20020930, end: 20060822
  39. OMEPRAZOLE [Concomitant]
     Active Substance: OMEPRAZOLE
     Indication: Gastrooesophageal reflux disease
     Dates: start: 20080228, end: 20080503
  40. OMEPRAZOLE [Concomitant]
     Active Substance: OMEPRAZOLE
     Indication: Barrett^s oesophagus
     Dates: start: 20080527, end: 20080707
  41. OMEPRAZOLE [Concomitant]
     Active Substance: OMEPRAZOLE
     Dates: start: 20090713, end: 20100318
  42. OMEPRAZOLE [Concomitant]
     Active Substance: OMEPRAZOLE
     Dates: start: 20100420, end: 20100509
  43. OMEPRAZOLE [Concomitant]
     Active Substance: OMEPRAZOLE
     Dates: start: 20100615, end: 20110712
  44. OMEPRAZOLE [Concomitant]
     Active Substance: OMEPRAZOLE
     Dates: start: 20110815, end: 20121210
  45. OMEPRAZOLE [Concomitant]
     Active Substance: OMEPRAZOLE
     Dates: start: 20130204, end: 20150318
  46. OMEPRAZOLE [Concomitant]
     Active Substance: OMEPRAZOLE
     Dates: start: 20160518, end: 20200530
  47. OMEPRAZOLE [Concomitant]
     Active Substance: OMEPRAZOLE
     Dates: start: 20201204

REACTIONS (4)
  - Dry age-related macular degeneration [Not Recovered/Not Resolved]
  - Maculopathy [Unknown]
  - Retinal degeneration [Unknown]
  - Off label use [Unknown]

NARRATIVE: CASE EVENT DATE: 20060101
